FAERS Safety Report 24263017 (Version 2)
Quarter: 2024Q3

REPORT INFORMATION
  Report Type: Spontaneous
  Country: US (occurrence: US)
  Receive Date: 20240829
  Receipt Date: 20240930
  Transmission Date: 20241017
  Serious: No
  Sender: PFIZER
  Company Number: US-PFIZER INC-202400242418

PATIENT
  Age: 7 Year
  Sex: Male
  Weight: 33.4 kg

DRUGS (2)
  1. GENOTROPIN [Suspect]
     Active Substance: SOMATROPIN
     Indication: Adrenogenital syndrome
     Dosage: HE TAKES EITHER 1.3 OR 1.4
  2. SUPPRELIN [Concomitant]
     Active Substance: HISTRELIN ACETATE
     Indication: Precocious puberty
     Dosage: UNK

REACTIONS (3)
  - Drug dose omission by device [Unknown]
  - Device mechanical issue [Unknown]
  - Off label use [Unknown]
